FAERS Safety Report 4866749-1 (Version None)
Quarter: 2005Q4

REPORT INFORMATION
  Report Type: 
  Country: None (occurrence: None)
  Receive Date: 20051221
  Receipt Date: 20051207
  Transmission Date: 20060501
  Serious: Yes (Hospitalization)
  Sender: FDA-Public Use
  Company Number: S05-FRA-03795-01

PATIENT
  Age: 70 Year
  Sex: Male
  Weight: 61 kg

DRUGS (5)
  1. CITALOPRAM HYDROBROMIDE [Suspect]
     Dosage: 20 MG QD PO
     Route: 048
     Dates: start: 20050415
  2. ASPIRIN [Suspect]
     Dosage: 160 MG QD PO
     Route: 048
     Dates: start: 20050721, end: 20050728
  3. PLAVIX [Concomitant]
  4. BETAHISTINE [Concomitant]
  5. FLUCONAZOLE [Concomitant]

REACTIONS (5)
  - BLOOD UREA INCREASED [None]
  - C-REACTIVE PROTEIN INCREASED [None]
  - HYPERPROTEINAEMIA [None]
  - NORMOCHROMIC NORMOCYTIC ANAEMIA [None]
  - PEPTIC ULCER HAEMORRHAGE [None]
